FAERS Safety Report 23693597 (Version 1)
Quarter: 2024Q2

REPORT INFORMATION
  Report Type: Spontaneous
  Country: US (occurrence: US)
  Receive Date: 20240401
  Receipt Date: 20240401
  Transmission Date: 20240716
  Serious: No
  Sender: FDA-Public Use
  Company Number: US-KARYOPHARM-2024KPT000850

PATIENT

DRUGS (1)
  1. XPOVIO [Suspect]
     Active Substance: SELINEXOR
     Indication: Product used for unknown indication
     Route: 048

REACTIONS (3)
  - Pain [Unknown]
  - Fatigue [Unknown]
  - Nausea [Unknown]
